FAERS Safety Report 14689591 (Version 1)
Quarter: 2018Q1

REPORT INFORMATION
  Report Type: Spontaneous
  Country: JP (occurrence: JP)
  Receive Date: 20180328
  Receipt Date: 20180328
  Transmission Date: 20180509
  Serious: Yes (Other)
  Sender: FDA-Public Use
  Company Number: JP-MYLANLABS-2017M1058600

PATIENT
  Sex: Female
  Weight: 50 kg

DRUGS (6)
  1. VEPESID [Suspect]
     Active Substance: ETOPOSIDE
     Indication: NEUROENDOCRINE CARCINOMA OF THE SKIN
     Dosage: 140 MG, QD
     Route: 042
     Dates: start: 20161115, end: 20161117
  2. ALOXI [Concomitant]
     Active Substance: PALONOSETRON HYDROCHLORIDE
     Indication: PRODUCT USED FOR UNKNOWN INDICATION
     Dosage: 0.75 MG, QD
     Route: 042
     Dates: start: 20161115, end: 20161115
  3. CARBOPLATIN INJ. 50MG ^NK^ [Suspect]
     Active Substance: CARBOPLATIN
     Dosage: AUC 5 ON DAY 1
  4. VEPESID [Suspect]
     Active Substance: ETOPOSIDE
     Dosage: 100 MG/M2 DAY 1 TO DAY3, EVERY 3 WEEKSUNK
  5. GRANISETRON [Concomitant]
     Active Substance: GRANISETRON
     Indication: PRODUCT USED FOR UNKNOWN INDICATION
     Dosage: 3 MG, BID
     Route: 041
     Dates: start: 20161116, end: 20161117
  6. CARBOPLATIN INJ. 50MG ^NK^ [Suspect]
     Active Substance: CARBOPLATIN
     Indication: NEUROENDOCRINE CARCINOMA OF THE SKIN
     Dosage: 500 MG, QD
     Route: 042
     Dates: start: 20161115, end: 20161115

REACTIONS (2)
  - Bone marrow failure [Recovering/Resolving]
  - Immune thrombocytopenic purpura [Recovering/Resolving]
